FAERS Safety Report 7285931-X (Version None)
Quarter: 2011Q1

REPORT INFORMATION
  Report Type: 
  Country: None (occurrence: None)
  Receive Date: 20110210
  Receipt Date: 20110201
  Transmission Date: 20110831
  Serious: Yes (Hospitalization, Other)
  Sender: FDA-Public Use
  Company Number: JP-MERCK-1102USA00637

PATIENT
  Age: 85 Year
  Sex: Female

DRUGS (7)
  1. NIVADIL [Concomitant]
     Route: 065
  2. PEPCID [Suspect]
     Route: 048
  3. CALBLOCK [Concomitant]
     Route: 065
  4. DIGOXIN [Suspect]
     Route: 048
  5. ALDACTONE [Concomitant]
     Route: 048
  6. BIOFERMIN [Concomitant]
     Route: 065
  7. ASPIRIN [Concomitant]
     Route: 065

REACTIONS (2)
  - TOXICITY TO VARIOUS AGENTS [None]
  - RENAL FAILURE ACUTE [None]
